FAERS Safety Report 16453479 (Version 2)
Quarter: 2019Q2

REPORT INFORMATION
  Report Type: Spontaneous
  Country: KR (occurrence: KR)
  Receive Date: 20190619
  Receipt Date: 20190623
  Transmission Date: 20190711
  Serious: Yes (Hospitalization)
  Sender: FDA-Public Use
  Company Number: KR-009507513-1904KOR000510

PATIENT
  Sex: Female

DRUGS (65)
  1. GASMOTIN [Concomitant]
     Active Substance: MOSAPRIDE CITRATE
     Dosage: QUANTITY 3; DAYS 2
     Route: 048
     Dates: start: 20190314, end: 20190315
  2. MECOBALAMIN [Concomitant]
     Active Substance: METHYLCOBALAMIN
     Dosage: QUANTITY 2, DAYS 5
     Route: 048
     Dates: start: 20190502, end: 20190507
  3. MECOBALAMIN [Concomitant]
     Active Substance: METHYLCOBALAMIN
     Dosage: QUANTITY 2, DAYS 8
     Route: 048
     Dates: start: 20190529, end: 20190529
  4. EVISTA [Concomitant]
     Active Substance: RALOXIFENE HYDROCHLORIDE
     Dosage: QUANTITY 1; DAYS 3
     Route: 048
     Dates: start: 20190313, end: 20190316
  5. CYMBALTA [Concomitant]
     Active Substance: DULOXETINE HYDROCHLORIDE
     Dosage: QUANTITY 1, DAYS 3
     Route: 048
     Dates: start: 20190508, end: 20190508
  6. SODIUM CHLORIDE. [Concomitant]
     Active Substance: SODIUM CHLORIDE
     Dosage: QUANTITY 1, DAYS 1
     Dates: start: 20190314, end: 20190314
  7. SODIUM CHLORIDE. [Concomitant]
     Active Substance: SODIUM CHLORIDE
     Dosage: QUANTITY 1, DAYS 1
     Dates: start: 20190410, end: 20190410
  8. KEYTRUDA [Suspect]
     Active Substance: PEMBROLIZUMAB
     Dosage: QUANTITY 2, DAYS 1
     Dates: start: 20190502, end: 20190502
  9. MECOBALAMIN [Concomitant]
     Active Substance: METHYLCOBALAMIN
     Dosage: QUANTITY 3, DAYS 1
     Route: 048
     Dates: start: 20190503, end: 20190503
  10. MECOBALAMIN [Concomitant]
     Active Substance: METHYLCOBALAMIN
     Dosage: QUANTITY 2, DAYS 6
     Route: 048
     Dates: start: 20190523, end: 20190528
  11. EVISTA [Concomitant]
     Active Substance: RALOXIFENE HYDROCHLORIDE
     Dosage: QUANTITY 1, DAYS 3
     Route: 048
     Dates: start: 20190409, end: 20190413
  12. CYMBALTA [Concomitant]
     Active Substance: DULOXETINE HYDROCHLORIDE
     Dosage: QUANTITY 1, DAYS 5
     Route: 048
     Dates: start: 20190409, end: 20190413
  13. SODIUM CHLORIDE. [Concomitant]
     Active Substance: SODIUM CHLORIDE
     Dosage: QUANTITY 1, DAYS 1
     Dates: start: 20190410, end: 20190410
  14. SODIUM CHLORIDE. [Concomitant]
     Active Substance: SODIUM CHLORIDE
     Dosage: QUANTITY 1, DAYS 2
     Dates: start: 20190523, end: 20190529
  15. GASMOTIN [Concomitant]
     Active Substance: MOSAPRIDE CITRATE
     Dosage: QUANTITY 2; DAYS1
     Route: 048
     Dates: start: 20190313, end: 20190313
  16. MECOBALAMIN [Concomitant]
     Active Substance: METHYLCOBALAMIN
     Dosage: QUANTITY 3; DAYS2
     Route: 048
     Dates: start: 20190314, end: 20190315
  17. MECOBALAMIN [Concomitant]
     Active Substance: METHYLCOBALAMIN
     Dosage: QUANTITY 1; DAYS 1
     Route: 048
     Dates: start: 20190316, end: 20190316
  18. MECOBALAMIN [Concomitant]
     Active Substance: METHYLCOBALAMIN
     Dosage: QUANTITY 3, DAYS 18
     Route: 048
     Dates: start: 20190413, end: 20190413
  19. MECOBALAMIN [Concomitant]
     Active Substance: METHYLCOBALAMIN
     Dosage: QUANTITY 1, DAYS 2
     Route: 048
     Dates: start: 20190501, end: 20190508
  20. SODIUM CHLORIDE. [Concomitant]
     Active Substance: SODIUM CHLORIDE
     Dosage: QUANTITY 1, DAYS 1
     Dates: start: 20190523, end: 20190523
  21. MECOBALAMIN [Concomitant]
     Active Substance: METHYLCOBALAMIN
     Dosage: QUANTITY 3, DAYS 4
     Route: 048
     Dates: start: 20190409, end: 20190412
  22. MECOBALAMIN [Concomitant]
     Active Substance: METHYLCOBALAMIN
     Dosage: QUANTITY 2, DAYS 3
     Route: 048
     Dates: start: 20190508, end: 20190508
  23. EVISTA [Concomitant]
     Active Substance: RALOXIFENE HYDROCHLORIDE
     Dosage: QUANTITY 1; DAYS 7
     Route: 048
     Dates: start: 20190316, end: 20190316
  24. CYMBALTA [Concomitant]
     Active Substance: DULOXETINE HYDROCHLORIDE
     Dosage: QUANTITY 1, DAYS 3
     Route: 048
     Dates: start: 20190314, end: 20190316
  25. CYMBALTA [Concomitant]
     Active Substance: DULOXETINE HYDROCHLORIDE
     Dosage: QUANTITY 1, DAYS18
     Route: 048
     Dates: start: 20190413, end: 20190413
  26. CYMBALTA [Concomitant]
     Active Substance: DULOXETINE HYDROCHLORIDE
     Dosage: QUANTITY 1, DAYS 8
     Route: 048
     Dates: start: 20190529, end: 20190529
  27. SODIUM CHLORIDE. [Concomitant]
     Active Substance: SODIUM CHLORIDE
     Dosage: QUANTITY 1, DAYS 1
     Dates: start: 20190315, end: 20190315
  28. SODIUM CHLORIDE. [Concomitant]
     Active Substance: SODIUM CHLORIDE
     Dosage: QUANTITY 2, DAYS 1
     Dates: start: 20190502, end: 20190502
  29. SODIUM CHLORIDE. [Concomitant]
     Active Substance: SODIUM CHLORIDE
     Dosage: QUANTITY 1, DAYS 1
     Dates: start: 20190523, end: 20190523
  30. SODIUM CHLORIDE. [Concomitant]
     Active Substance: SODIUM CHLORIDE
     Dosage: QUANTITY 1, DAYS 1
     Dates: start: 20190502, end: 20190502
  31. GASMOTIN [Concomitant]
     Active Substance: MOSAPRIDE CITRATE
     Dosage: QUANTITY 1, DAYS 1
     Route: 048
     Dates: start: 20190316, end: 20190316
  32. GASMOTIN [Concomitant]
     Active Substance: MOSAPRIDE CITRATE
     Dosage: QUANTITY 1, DAYS 2
     Route: 048
     Dates: start: 20190501, end: 20190508
  33. GASMOTIN [Concomitant]
     Active Substance: MOSAPRIDE CITRATE
     Dosage: QUANTITY 2, DAYS 1
     Route: 048
     Dates: start: 20190502, end: 20190502
  34. GASMOTIN [Concomitant]
     Active Substance: MOSAPRIDE CITRATE
     Dosage: QUANTITY 3, DAYS 4
     Route: 048
     Dates: start: 20190503, end: 20190507
  35. MECOBALAMIN [Concomitant]
     Active Substance: METHYLCOBALAMIN
     Dosage: QUANTITY 2; DAYS1
     Route: 048
     Dates: start: 20190313, end: 20190313
  36. EVISTA [Concomitant]
     Active Substance: RALOXIFENE HYDROCHLORIDE
     Dosage: QUANTITY 1, DAYS 18
     Route: 048
     Dates: start: 20190413, end: 20190413
  37. EVISTA [Concomitant]
     Active Substance: RALOXIFENE HYDROCHLORIDE
     Dosage: QUANTITY 1, DAYS 7
     Route: 048
     Dates: start: 20190502, end: 20190508
  38. IOMERON [Concomitant]
     Active Substance: IOMEPROL
     Dosage: QUANTITY 0.24; DAYS 1
     Dates: start: 20190313, end: 20190313
  39. SODIUM CHLORIDE. [Concomitant]
     Active Substance: SODIUM CHLORIDE
     Dosage: QUANTITY 1, DAYS 1
     Dates: start: 20190314, end: 20190314
  40. SODIUM CHLORIDE. [Concomitant]
     Active Substance: SODIUM CHLORIDE
     Dosage: QUANTITY 1, DAYS 1
     Dates: start: 20190502, end: 20190502
  41. SODIUM CHLORIDE. [Concomitant]
     Active Substance: SODIUM CHLORIDE
     Dosage: QUANTITY 1, DAYS 1
     Dates: start: 20190523, end: 20190523
  42. KEYTRUDA [Suspect]
     Active Substance: PEMBROLIZUMAB
     Indication: METASTATIC GASTRIC CANCER
     Dosage: QUANTITY 2; DAYS 1
     Dates: start: 20190314, end: 20190314
  43. KEYTRUDA [Suspect]
     Active Substance: PEMBROLIZUMAB
     Dosage: QUANTITY: 2, DAYS: 1
     Dates: start: 20190410, end: 20190410
  44. GASMOTIN [Concomitant]
     Active Substance: MOSAPRIDE CITRATE
     Dosage: QUANTITY 3, DAYS 7
     Route: 048
     Dates: start: 20190316, end: 20190316
  45. GASMOTIN [Concomitant]
     Active Substance: MOSAPRIDE CITRATE
     Dosage: QUANTITY 3, DAYS 4
     Route: 048
     Dates: start: 20190409, end: 20190412
  46. GASMOTIN [Concomitant]
     Active Substance: MOSAPRIDE CITRATE
     Dosage: QUANTITY 3, DAYS 3
     Route: 048
     Dates: start: 20190508, end: 20190508
  47. GASMOTIN [Concomitant]
     Active Substance: MOSAPRIDE CITRATE
     Dosage: QUANTITY 3, DAYS 8
     Route: 048
     Dates: start: 20190529, end: 20190529
  48. MECOBALAMIN [Concomitant]
     Active Substance: METHYLCOBALAMIN
     Dosage: QUANTITY 1, DAYS 2
     Route: 048
     Dates: start: 20190408, end: 20190413
  49. MECOBALAMIN [Concomitant]
     Active Substance: METHYLCOBALAMIN
     Dosage: QUANTITY 1, DAYS 2
     Route: 048
     Dates: start: 20190522, end: 20190529
  50. EVISTA [Concomitant]
     Active Substance: RALOXIFENE HYDROCHLORIDE
     Dosage: QUANTITY 1, DAYS 7
     Route: 048
     Dates: start: 20190523, end: 20190529
  51. SODIUM CHLORIDE. [Concomitant]
     Active Substance: SODIUM CHLORIDE
     Dosage: QUANTITY 1, DAYS 4
     Dates: start: 20190409, end: 20190412
  52. SODIUM CHLORIDE. [Concomitant]
     Active Substance: SODIUM CHLORIDE
     Dosage: QUANTITY 1, DAYS 3
     Dates: start: 20190502, end: 20190506
  53. SODIUM CHLORIDE. [Concomitant]
     Active Substance: SODIUM CHLORIDE
     Dosage: QUANTITY 1, DAYS 1
     Dates: start: 20190314, end: 20190314
  54. KEYTRUDA [Suspect]
     Active Substance: PEMBROLIZUMAB
     Dosage: QUANTITY 2, DAYS 1
     Dates: start: 20190523, end: 20190523
  55. MECOBALAMIN [Concomitant]
     Active Substance: METHYLCOBALAMIN
     Dosage: QUANTITY 3; DAYS 7
     Route: 048
     Dates: start: 20190316, end: 20190316
  56. EVISTA [Concomitant]
     Active Substance: RALOXIFENE HYDROCHLORIDE
     Dosage: QUANTITY 1, DAYS 3
     Route: 048
     Dates: start: 20190508, end: 20190508
  57. EVISTA [Concomitant]
     Active Substance: RALOXIFENE HYDROCHLORIDE
     Dosage: QUANTITY 1, DAYS 8
     Route: 048
     Dates: start: 20190529, end: 20190529
  58. GASMOTIN [Concomitant]
     Active Substance: MOSAPRIDE CITRATE
     Dosage: QUANTITY 1, DAYS 2
     Route: 048
     Dates: start: 20190408, end: 20190413
  59. GASMOTIN [Concomitant]
     Active Substance: MOSAPRIDE CITRATE
     Dosage: QUANTITY 3, DAYS 18
     Route: 048
     Dates: start: 20190413, end: 20190413
  60. GASMOTIN [Concomitant]
     Active Substance: MOSAPRIDE CITRATE
     Dosage: QUANTITY 1, DAYS 2
     Route: 048
     Dates: start: 20190522, end: 20190529
  61. GASMOTIN [Concomitant]
     Active Substance: MOSAPRIDE CITRATE
     Dosage: QUANTITY 3, DAYS 6
     Route: 048
     Dates: start: 20190523, end: 20190528
  62. EVISTA [Concomitant]
     Active Substance: RALOXIFENE HYDROCHLORIDE
     Dosage: QUANTITY 2, DAYS 1
     Route: 048
     Dates: start: 20190411, end: 20190411
  63. CYMBALTA [Concomitant]
     Active Substance: DULOXETINE HYDROCHLORIDE
     Dosage: QUANTITY 1, DAYS 7
     Route: 048
     Dates: start: 20190502, end: 20190508
  64. CYMBALTA [Concomitant]
     Active Substance: DULOXETINE HYDROCHLORIDE
     Dosage: QUANTITY 1, DAYS 7
     Route: 048
     Dates: start: 20190523, end: 20190529
  65. SODIUM CHLORIDE. [Concomitant]
     Active Substance: SODIUM CHLORIDE
     Dosage: QUANTITY 1, DAYS 1
     Dates: start: 20190410, end: 20190410

REACTIONS (6)
  - Product use in unapproved indication [Unknown]
  - Adverse event [Unknown]
  - Adverse event [Unknown]
  - Inappropriate schedule of product administration [Unknown]
  - Adverse event [Unknown]
  - Inappropriate schedule of product administration [Unknown]

NARRATIVE: CASE EVENT DATE: 201903
